FAERS Safety Report 9499389 (Version 1)
Quarter: 2013Q3

REPORT INFORMATION
  Report Type: Spontaneous
  Country: GB (occurrence: GB)
  Receive Date: 20130905
  Receipt Date: 20130905
  Transmission Date: 20140515
  Serious: Yes (Disabling)
  Sender: FDA-Public Use
  Company Number: GB-AMGEN-GBRSP2013061637

PATIENT
  Age: 77 Year
  Sex: Female
  Weight: 60 kg

DRUGS (7)
  1. PROLIA [Suspect]
     Indication: PRODUCT USED FOR UNKNOWN INDICATION
     Dosage: UNK
     Route: 065
     Dates: start: 201305
  2. BISOPROLOL [Concomitant]
     Dosage: UNK
     Dates: start: 20130426, end: 20130812
  3. GAVISCON ADVANCE [Concomitant]
     Dosage: UNK
     Dates: start: 20130613, end: 20130711
  4. HYDROXYCARBAMIDE [Concomitant]
     Dosage: UNK
     Dates: start: 20130426, end: 20130812
  5. LISINOPRIL [Concomitant]
     Dosage: UNK
     Dates: start: 20130426, end: 20130812
  6. MOVICOL                            /01625101/ [Concomitant]
     Dosage: UNK
     Dates: start: 20130426, end: 20130812
  7. OMEPRAZOLE [Concomitant]
     Dosage: UNK
     Dates: start: 20130426, end: 20130812

REACTIONS (3)
  - Malaise [Not Recovered/Not Resolved]
  - Hyperhidrosis [Not Recovered/Not Resolved]
  - Fatigue [Not Recovered/Not Resolved]
